FAERS Safety Report 9693172 (Version 3)
Quarter: 2014Q1

REPORT INFORMATION
  Report Type: Spontaneous
  Country: ES (occurrence: ES)
  Receive Date: 20131118
  Receipt Date: 20140114
  Transmission Date: 20141002
  Serious: Yes (Other)
  Sender: FDA-Public Use
  Company Number: ES-NOVOPROD-392416

PATIENT
  Sex: Female

DRUGS (2)
  1. NORDITROPIN SIMPLEXX [Suspect]
     Indication: TURNER^S SYNDROME
     Dosage: UNK
     Route: 065
     Dates: start: 2010
  2. NORDITROPIN SIMPLEXX [Suspect]
     Dosage: UNK
     Dates: start: 201306

REACTIONS (2)
  - Brain neoplasm [Unknown]
  - Acromegaly [Unknown]
